FAERS Safety Report 21386966 (Version 2)
Quarter: 2022Q4

REPORT INFORMATION
  Report Type: Spontaneous
  Country: KR (occurrence: KR)
  Receive Date: 20220928
  Receipt Date: 20221003
  Transmission Date: 20230113
  Serious: No
  Sender: FDA-Public Use
  Company Number: KR-PFIZER INC-202201183042

PATIENT
  Age: 21 Year
  Sex: Female

DRUGS (2)
  1. PROVERA [Suspect]
     Active Substance: MEDROXYPROGESTERONE ACETATE
     Indication: Polycystic ovaries
     Dosage: 5 MG, 1X/DAY
     Route: 048
     Dates: start: 20220426, end: 20220503
  2. ESTRADIOL VALERATE [Concomitant]
     Active Substance: ESTRADIOL VALERATE
     Indication: Polycystic ovaries
     Dosage: 2 MG
     Dates: start: 20220408, end: 20220923

REACTIONS (6)
  - Hypersensitivity [Recovered/Resolved]
  - Rash [Unknown]
  - Dyspnoea [Unknown]
  - Oedema peripheral [Unknown]
  - Abdominal distension [Unknown]
  - Off label use [Unknown]

NARRATIVE: CASE EVENT DATE: 20220426
